FAERS Safety Report 5970203-3 (Version None)
Quarter: 2008Q4

REPORT INFORMATION
  Report Type: 
  Country: None (occurrence: None)
  Receive Date: 20081126
  Receipt Date: 20081118
  Transmission Date: 20090506
  Serious: Yes (Death)
  Sender: FDA-Public Use
  Company Number: JP-ABBOTT-08P-087-0489800-00

PATIENT
  Age: 80 Year
  Sex: Male

DRUGS (7)
  1. LEUPROLIDE ACETATE [Suspect]
     Indication: PROSTATE CANCER STAGE IV
     Route: 058
     Dates: start: 20070905, end: 20080514
  2. BICALUTAMIDE [Concomitant]
     Indication: PROSTATE CANCER STAGE IV
     Route: 048
     Dates: start: 20080220, end: 20080404
  3. THEOPHYLLINE [Concomitant]
     Indication: ASTHMA
     Dates: end: 20070611
  4. URSODIOL [Concomitant]
     Indication: LIVER DISORDER
     Route: 048
     Dates: start: 20080307, end: 20080506
  5. URSODIOL [Concomitant]
     Indication: PROPHYLAXIS
  6. SENNOSIDE A+B [Concomitant]
     Indication: CONSTIPATION
     Route: 048
     Dates: start: 20080304, end: 20080331
  7. ESTRAMUSTINE PHOSPHATE SODIUM [Concomitant]
     Indication: PROSTATE CANCER STAGE IV
     Route: 048
     Dates: start: 20080320, end: 20080506

REACTIONS (1)
  - PROSTATE CANCER [None]
